FAERS Safety Report 8295924-1 (Version None)
Quarter: 2012Q2

REPORT INFORMATION
  Report Type: 
  Country: None (occurrence: None)
  Receive Date: 20120418
  Receipt Date: 20120416
  Transmission Date: 20120825
  Serious: Yes (Other)
  Sender: FDA-Public Use
  Company Number: AU-GLAXOSMITHKLINE-B0796453A

PATIENT
  Sex: Female

DRUGS (2)
  1. NICOTINE POLACRILEX [Suspect]
     Indication: EX-TOBACCO USER
     Route: 002
     Dates: start: 20050101
  2. UNSPECIFIED MEDICATION [Concomitant]
     Indication: THYROID DISORDER
     Route: 065

REACTIONS (3)
  - URTICARIA [None]
  - CONVULSION [None]
  - INTENTIONAL DRUG MISUSE [None]
